FAERS Safety Report 24298077 (Version 1)
Quarter: 2024Q3

REPORT INFORMATION
  Report Type: Spontaneous
  Country: NL (occurrence: NL)
  Receive Date: 20240909
  Receipt Date: 20240909
  Transmission Date: 20241016
  Serious: Yes (Other)
  Sender: MYLAN
  Company Number: None

PATIENT
  Age: 70 Year
  Sex: Male
  Weight: 83 kg

DRUGS (7)
  1. ACETAMINOPHEN [Suspect]
     Active Substance: ACETAMINOPHEN
     Indication: Analgesic therapy
     Dosage: 1000 MILLIGRAM, Q6H, 4 * 2
     Route: 065
     Dates: start: 20231128
  2. ACETAMINOPHEN [Suspect]
     Active Substance: ACETAMINOPHEN
     Indication: Mesothelioma
  3. PREDNISONE [Concomitant]
     Active Substance: PREDNISONE
     Dosage: 30 MILLIGRAM
     Route: 065
  4. SUFENTANIL CITRATE [Concomitant]
     Active Substance: SUFENTANIL CITRATE
     Dosage: FENTANIL PATCH STARTING AT 50 MG REDUCING TO 37 AND NOW 12 MG
     Route: 065
  5. SULFAMETHOXAZOLE\TRIMETHOPRIM [Concomitant]
     Active Substance: SULFAMETHOXAZOLE\TRIMETHOPRIM
     Dosage: 480 MILLIGRAM
     Route: 065
  6. AMITRIPTYLINE HYDROCHLORIDE [Concomitant]
     Active Substance: AMITRIPTYLINE HYDROCHLORIDE
     Dosage: 25 MILLIGRAM, TABLET, 25 MG (MILLIGRAM)
     Route: 065
  7. OMEPRAZOLE [Concomitant]
     Active Substance: OMEPRAZOLE
     Dosage: 40 MILLIGRAM, 40 MG
     Route: 065

REACTIONS (5)
  - Diaphragmalgia [Not Recovered/Not Resolved]
  - Malaise [Not Recovered/Not Resolved]
  - Abdominal discomfort [Not Recovered/Not Resolved]
  - Alanine aminotransferase increased [Not Recovered/Not Resolved]
  - Aspartate aminotransferase increased [Not Recovered/Not Resolved]
